FAERS Safety Report 10639078 (Version 1)
Quarter: 2014Q4

REPORT INFORMATION
  Report Type: Spontaneous
  Country: FR (occurrence: FR)
  Receive Date: 20141208
  Receipt Date: 20141208
  Transmission Date: 20150529
  Serious: Yes (Hospitalization, Other)
  Sender: FDA-Public Use
  Company Number: FR-PFIZER INC-2014330350

PATIENT
  Age: 26 Year
  Sex: Male

DRUGS (6)
  1. HEROIN [Suspect]
     Active Substance: DIACETYLMORPHINE
     Dosage: 4 G, UNK
     Route: 045
  2. METHADONE [Suspect]
     Active Substance: METHADONE HYDROCHLORIDE
     Indication: THERAPY CHANGE
     Dosage: 80 MG, UNK
  3. HEROIN [Suspect]
     Active Substance: DIACETYLMORPHINE
     Dosage: UNK
  4. XANAX [Suspect]
     Active Substance: ALPRAZOLAM
     Dosage: 0.5 MG, 2 - 4 TIMES DAILY
  5. SUBUTEX [Suspect]
     Active Substance: BUPRENORPHINE HYDROCHLORIDE
     Dosage: 16 MG, UNK
     Route: 060
  6. XANAX [Suspect]
     Active Substance: ALPRAZOLAM
     Dosage: 0.5 MG, 4X/DAY, AS NEEDED

REACTIONS (9)
  - Myalgia [Recovered/Resolved]
  - Hot flush [Recovered/Resolved]
  - Psychomotor hyperactivity [Recovered/Resolved]
  - Hyperhidrosis [Recovered/Resolved]
  - Diarrhoea [Recovered/Resolved]
  - Tremor [Recovered/Resolved]
  - Drug abuse [Recovered/Resolved]
  - Withdrawal syndrome [Recovered/Resolved]
  - Vomiting [Recovered/Resolved]
